FAERS Safety Report 4757042-6 (Version None)
Quarter: 2005Q3

REPORT INFORMATION
  Report Type: 
  Country: None (occurrence: None)
  Receive Date: 20050829
  Receipt Date: 20050829
  Transmission Date: 20060218
  Serious: Yes (Death)
  Sender: FDA-Public Use
  Company Number: None

PATIENT
  Age: 19 Year
  Sex: Male
  Weight: 58.9676 kg

DRUGS (2)
  1. PAXIL CR [Suspect]
     Indication: ANXIETY
     Dosage: 1 TABLET DAILY
     Dates: start: 20040914, end: 20040926
  2. PAXIL CR [Suspect]
     Indication: DEPRESSION
     Dosage: 1 TABLET DAILY
     Dates: start: 20040914, end: 20040926

REACTIONS (3)
  - ASPHYXIA [None]
  - COMPLETED SUICIDE [None]
  - EMOTIONAL DISORDER [None]
